FAERS Safety Report 16098624 (Version 1)
Quarter: 2019Q1

REPORT INFORMATION
  Report Type: Report from Study
  Country: DE (occurrence: DE)
  Receive Date: 20190321
  Receipt Date: 20190321
  Transmission Date: 20190418
  Serious: Yes (Death)
  Sender: FDA-Public Use
  Company Number: DE-TEVA-2019-DE-1026292

PATIENT

DRUGS (10)
  1. ETOPOSIDE. [Suspect]
     Active Substance: ETOPOSIDE
     Indication: LYMPHOMA
     Dosage: ON DAYS 5 AND 6 AS A PART OF BLOCK-A
     Route: 042
  2. CYTARABINE. [Suspect]
     Active Substance: CYTARABINE
     Indication: LYMPHOMA
     Dosage: ON DAYS 5 AND 6 AS A PART OF BLOCK-A
     Route: 042
  3. IFOSFAMIDE. [Suspect]
     Active Substance: IFOSFAMIDE
     Indication: LYMPHOMA
     Dosage: ON DAYS 2 TO 6 AS A PART OF BLOCK-A
     Route: 042
  4. DOXORUBICIN [Suspect]
     Active Substance: DOXORUBICIN
     Indication: LYMPHOMA
     Dosage: ON DAYS 5 AND 6 AS A PART OF BLOCK-B
     Route: 042
  5. METHOTREXATE. [Suspect]
     Active Substance: METHOTREXATE
     Indication: LYMPHOMA
     Dosage: IN BLOCK A AND B ON DAY 2
     Route: 042
  6. VINCRISTINE [Suspect]
     Active Substance: VINCRISTINE
     Indication: LYMPHOMA
     Dosage: ON DAY 2
     Route: 042
  7. RITUXIMAB. [Suspect]
     Active Substance: RITUXIMAB
     Indication: LYMPHOMA
     Dosage: BLOCK A AND BLOCK B (ON DAY 1)
     Route: 042
  8. CYCLOPHOSPHAMIDE. [Suspect]
     Active Substance: CYCLOPHOSPHAMIDE
     Indication: LYMPHOMA
     Dosage: AS A PART OF BLOCK-B
     Route: 042
  9. DEXAMETHASONE. [Suspect]
     Active Substance: DEXAMETHASONE
     Indication: LYMPHOMA
     Dosage: BLOCK A AND BLOCK B (DAYS 2 TO 6)
     Route: 048
  10. METHOTREXATE. [Suspect]
     Active Substance: METHOTREXATE
     Indication: PROPHYLAXIS
     Route: 037

REACTIONS (1)
  - Hepatic failure [Fatal]
